FAERS Safety Report 20064697 (Version 1)
Quarter: 2021Q4

REPORT INFORMATION
  Report Type: Report from Study
  Country: AU (occurrence: AU)
  Receive Date: 20211112
  Receipt Date: 20211112
  Transmission Date: 20220303
  Serious: Yes (Hospitalization)
  Sender: FDA-Public Use
  Company Number: AU-JNJFOC-20211113220

PATIENT
  Sex: Female
  Weight: 59.2 kg

DRUGS (6)
  1. IBRUTINIB [Suspect]
     Active Substance: IBRUTINIB
     Indication: B-cell lymphoma refractory
     Route: 048
     Dates: start: 20210811, end: 20211103
  2. IBRUTINIB [Suspect]
     Active Substance: IBRUTINIB
     Indication: Immunosuppression
  3. RITUXIMAB [Concomitant]
     Active Substance: RITUXIMAB
     Indication: B-cell lymphoma refractory
     Route: 042
     Dates: start: 20210802, end: 20210823
  4. RITUXIMAB [Concomitant]
     Active Substance: RITUXIMAB
     Indication: Immunosuppression
  5. VALACYCLOVIR HYDROCHLORIDE [Concomitant]
     Active Substance: VALACYCLOVIR HYDROCHLORIDE
     Indication: B-cell lymphoma refractory
     Route: 042
     Dates: start: 20210802
  6. VALACYCLOVIR HYDROCHLORIDE [Concomitant]
     Active Substance: VALACYCLOVIR HYDROCHLORIDE
     Indication: Immunosuppression
     Route: 042
     Dates: end: 20211104

REACTIONS (1)
  - Febrile neutropenia [Not Recovered/Not Resolved]

NARRATIVE: CASE EVENT DATE: 20211023
